FAERS Safety Report 9495071 (Version 2)
Quarter: 2013Q3

REPORT INFORMATION
  Report Type: Spontaneous
  Country: NL (occurrence: NL)
  Receive Date: 20130903
  Receipt Date: 20130917
  Transmission Date: 20140515
  Serious: Yes (Other)
  Sender: FDA-Public Use
  Company Number: NL-JNJFOC-20130815812

PATIENT
  Sex: Male

DRUGS (2)
  1. STELARA [Suspect]
     Indication: PRODUCT USED FOR UNKNOWN INDICATION
     Route: 058
  2. LAMISIL [Concomitant]
     Indication: FUNGAL INFECTION
     Dosage: ON 26-AUG (YEAR UNSPECIFIED)
     Route: 048

REACTIONS (1)
  - Trichophytosis [Recovered/Resolved]
